FAERS Safety Report 9255117 (Version 1)
Quarter: 2013Q2

REPORT INFORMATION
  Report Type: Spontaneous
  Country: US (occurrence: None)
  Receive Date: 20130419
  Receipt Date: 20130419
  Transmission Date: 20140414
  Serious: Yes (Other)
  Sender: FDA-Public Use
  Company Number: COR_00005_2013

PATIENT
  Age: 62 Year
  Sex: Female

DRUGS (3)
  1. CARBOPLATIN [Suspect]
     Indication: OVARIAN CANCER STAGE IV
  2. PACLITAXEL [Suspect]
     Indication: OVARIAN CANCER STAGE IV
  3. GEMCITABINE [Concomitant]

REACTIONS (4)
  - Pruritus [None]
  - Swelling [None]
  - Skin hypopigmentation [None]
  - Scleroderma [None]
